FAERS Safety Report 10771707 (Version 1)
Quarter: 2015Q1

REPORT INFORMATION
  Report Type: Report from Study
  Country: US (occurrence: US)
  Receive Date: 20150206
  Receipt Date: 20150206
  Transmission Date: 20150721
  Serious: Yes (Other)
  Sender: FDA-Public Use
  Company Number: US-GLAXOSMITHKLINE-US2015GSK012353

PATIENT
  Age: 47 Year
  Sex: Female

DRUGS (6)
  1. ZOFRAN ORAL LIQUID [Concomitant]
     Dosage: 8 MG, PRN
  2. PAZOPANIB [Suspect]
     Active Substance: PAZOPANIB
     Indication: FALLOPIAN TUBE CANCER
     Dosage: 800 MG, QD
     Route: 048
     Dates: start: 20141230
  3. PAZOPANIB [Suspect]
     Active Substance: PAZOPANIB
     Dosage: 600 MG, QD
  4. COLACE [Concomitant]
     Active Substance: DOCUSATE SODIUM
     Dosage: 100 MG, PRN
  5. CENTRUM SILVER [Concomitant]
     Active Substance: VITAMINS
  6. GEMCITABINE [Suspect]
     Active Substance: GEMCITABINE\GEMCITABINE HYDROCHLORIDE
     Indication: FALLOPIAN TUBE CANCER
     Dosage: UNK, CYC
     Route: 042
     Dates: start: 20141210

REACTIONS (1)
  - Alanine aminotransferase increased [Not Recovered/Not Resolved]

NARRATIVE: CASE EVENT DATE: 20150128
